FAERS Safety Report 5279966-6 (Version None)
Quarter: 2007Q1

REPORT INFORMATION
  Report Type: 
  Country: None (occurrence: None)
  Receive Date: 20070327
  Receipt Date: 20070327
  Transmission Date: 20070707
  Serious: Yes (Hospitalization, Other)
  Sender: FDA-Public Use
  Company Number: None

PATIENT
  Age: 65 Year
  Sex: Male
  Weight: 99.4 kg

DRUGS (2)
  1. CUBICIN [Suspect]
     Indication: ABDOMINAL HAEMATOMA
     Dosage: 500MG DAILY IV DRIP
     Route: 041
     Dates: start: 20070315, end: 20070320
  2. CUBICIN [Suspect]
     Indication: DEVICE RELATED INFECTION
     Dosage: 500MG DAILY IV DRIP
     Route: 041
     Dates: start: 20070315, end: 20070320

REACTIONS (2)
  - BLOOD CREATINE PHOSPHOKINASE INCREASED [None]
  - PANCREATITIS ACUTE [None]
